FAERS Safety Report 10789877 (Version 3)
Quarter: 2015Q1

REPORT INFORMATION
  Report Type: Report from Study
  Country: CO (occurrence: CO)
  Receive Date: 20150212
  Receipt Date: 20150302
  Transmission Date: 20150721
  Serious: Yes (Death, Hospitalization, Disabling)
  Sender: FDA-Public Use
  Company Number: CO-AMGEN-COLSL2015013012

PATIENT
  Age: 41 Year
  Sex: Male
  Weight: 64 kg

DRUGS (1)
  1. MIMPARA [Suspect]
     Active Substance: CINACALCET HYDROCHLORIDE
     Indication: HYPERPARATHYROIDISM SECONDARY
     Dosage: 60 UNK, QD
     Route: 048
     Dates: start: 20141016

REACTIONS (5)
  - Chest pain [Not Recovered/Not Resolved]
  - Lung disorder [Unknown]
  - Coronary artery disease [Unknown]
  - Chills [Not Recovered/Not Resolved]
  - Bronchopneumonia [Fatal]

NARRATIVE: CASE EVENT DATE: 20150129
